FAERS Safety Report 8981350 (Version 1)
Quarter: 2012Q4

REPORT INFORMATION
  Report Type: 
  Country: US (occurrence: US)
  Receive Date: 20121221
  Receipt Date: 20121221
  Transmission Date: 20130627
  Serious: No
  Sender: FDA-Public Use
  Company Number: US-TARO-2011P1013402

PATIENT
  Age: 46 Year
  Sex: Female
  Weight: 61.24 kg

DRUGS (2)
  1. FLUOROURACIL [Suspect]
     Route: 061
     Dates: start: 2006, end: 201111
  2. FLUOROURACIL [Suspect]
     Dates: start: 201111

REACTIONS (1)
  - Drug ineffective [Recovered/Resolved]
